FAERS Safety Report 20211521 (Version 1)
Quarter: 2021Q4

REPORT INFORMATION
  Report Type: Spontaneous
  Country: US (occurrence: None)
  Receive Date: 20211221
  Receipt Date: 20211221
  Transmission Date: 20220303
  Serious: Yes (Hospitalization, Other)
  Sender: FDA-Public Use
  Company Number: US-Hikma Pharmaceuticals USA Inc.-US-H14001-21-05341

PATIENT
  Age: 26 Year
  Sex: Male

DRUGS (1)
  1. PREDNISONE [Suspect]
     Active Substance: PREDNISONE
     Indication: Colitis ulcerative
     Route: 065

REACTIONS (4)
  - Diarrhoea haemorrhagic [Recovering/Resolving]
  - Colitis [Recovering/Resolving]
  - Cytomegalovirus infection [Recovering/Resolving]
  - Clostridium difficile infection [Recovering/Resolving]
